FAERS Safety Report 24808337 (Version 1)
Quarter: 2025Q1

REPORT INFORMATION
  Report Type: Spontaneous
  Country: US (occurrence: US)
  Receive Date: 20250106
  Receipt Date: 20250106
  Transmission Date: 20250409
  Serious: No
  Sender: AMGEN
  Company Number: US-AMGEN-USASP2024256705

PATIENT
  Age: 53 Year
  Sex: Male

DRUGS (3)
  1. PREDNISONE [Suspect]
     Active Substance: PREDNISONE
     Indication: Gastroenteritis eosinophilic
     Route: 065
  2. CROMOLYN [Suspect]
     Active Substance: CROMOLYN
     Indication: Gastroenteritis eosinophilic
     Route: 065
  3. MONTELUKAST [Concomitant]
     Active Substance: MONTELUKAST
     Dosage: 10 MILLIGRAM, QD
     Route: 065

REACTIONS (8)
  - Hypoproteinaemia [Unknown]
  - Therapy partial responder [Unknown]
  - Iron deficiency anaemia [Unknown]
  - Hypoalbuminaemia [Unknown]
  - Folate deficiency [Unknown]
  - Vitamin D deficiency [Unknown]
  - Faecal calprotectin increased [Unknown]
  - Off label use [Unknown]
